FAERS Safety Report 6429668-5 (Version None)
Quarter: 2009Q4

REPORT INFORMATION
  Report Type: 
  Country: None (occurrence: None)
  Receive Date: 20091106
  Receipt Date: 20091026
  Transmission Date: 20100525
  Serious: Yes (Hospitalization)
  Sender: FDA-Public Use
  Company Number: US-BIOGENIDEC-2009BI034638

PATIENT
  Age: 42 Year
  Sex: Female

DRUGS (7)
  1. TYSABRI [Suspect]
     Indication: MULTIPLE SCLEROSIS
     Route: 042
     Dates: start: 20071219
  2. TOPAMAX [Concomitant]
     Indication: PROPHYLAXIS
  3. HYDROCODONE [Concomitant]
     Indication: PAIN
  4. EFFEXOR [Concomitant]
     Indication: DEPRESSION
     Route: 048
  5. MELOXICAM [Concomitant]
     Indication: MIGRAINE
     Route: 048
  6. GABAPENTIN [Concomitant]
  7. ADDERALL 10 [Concomitant]
     Indication: FATIGUE
     Route: 048

REACTIONS (1)
  - SPINAL OSTEOARTHRITIS [None]
